FAERS Safety Report 9509071 (Version 2)
Quarter: 2014Q3

REPORT INFORMATION
  Report Type: Spontaneous
  Country: US (occurrence: US)
  Receive Date: 20130909
  Receipt Date: 20140908
  Transmission Date: 20150326
  Serious: No
  Sender: FDA-Public Use
  Company Number: US-BRISTOL-MYERS SQUIBB COMPANY-19055524

PATIENT
  Age: 49 Year
  Sex: Female
  Weight: 76 kg

DRUGS (1)
  1. ABILIFY [Suspect]
     Active Substance: ARIPIPRAZOLE
     Indication: SCHIZOAFFECTIVE DISORDER
     Dosage: INTIAL DOSE 30MG THEN DECRESD TO15MG,10,5MG?INCRESD TO 10MG IN SEP2013?EXP DATE:NOV2015 OR2013
     Route: 048

REACTIONS (8)
  - Sluggishness [Unknown]
  - Insomnia [Recovered/Resolved]
  - Dysuria [Unknown]
  - Agitation [Recovered/Resolved]
  - Constipation [Unknown]
  - Aggression [Recovered/Resolved]
  - Palpitations [Unknown]
  - Akathisia [Unknown]

NARRATIVE: CASE EVENT DATE: 2010
